FAERS Safety Report 7912071-6 (Version None)
Quarter: 2011Q4

REPORT INFORMATION
  Report Type: 
  Country: None (occurrence: None)
  Receive Date: 20111114
  Receipt Date: 20111107
  Transmission Date: 20120403
  Serious: Yes (Hospitalization)
  Sender: FDA-Public Use
  Company Number: AT-SANOFI-AVENTIS-2011SA073333

PATIENT
  Age: 51 Year
  Sex: Female

DRUGS (4)
  1. NEULASTA [Concomitant]
     Indication: PROPHYLAXIS
     Route: 058
     Dates: start: 20110916, end: 20110916
  2. NEULASTA [Concomitant]
     Route: 058
     Dates: start: 20111007, end: 20111007
  3. TAXOTERE [Suspect]
     Route: 042
     Dates: start: 20111006, end: 20111006
  4. TAXOTERE [Suspect]
     Route: 042
     Dates: start: 20110915, end: 20110915

REACTIONS (3)
  - RENAL FAILURE [None]
  - HYPERURICAEMIA [None]
  - LIVER FUNCTION TEST ABNORMAL [None]
